FAERS Safety Report 21333858 (Version 1)
Quarter: 2022Q3

REPORT INFORMATION
  Report Type: Spontaneous
  Country: CN (occurrence: CN)
  Receive Date: 20220914
  Receipt Date: 20220914
  Transmission Date: 20221026
  Serious: Yes (Hospitalization, Other)
  Sender: FDA-Public Use
  Company Number: None

PATIENT
  Age: 8 Year
  Sex: Male
  Weight: 25 kg

DRUGS (6)
  1. CYCLOPHOSPHAMIDE [Suspect]
     Active Substance: CYCLOPHOSPHAMIDE
     Indication: Hodgkin^s disease
     Dosage: 0.564 G, QD (DILUTED WITH 0.9% SODIUM CHLORIDE INJECTION 250ML)
     Route: 041
     Dates: start: 20220728, end: 20220729
  2. SODIUM CHLORIDE [Suspect]
     Active Substance: SODIUM CHLORIDE
     Indication: Medication dilution
     Dosage: 250 ML, QD (DILUTED WITH CYCLOPHOSPHAMIDE FOR INJECTION 0.564G)
     Route: 041
     Dates: start: 20220728, end: 20220729
  3. SODIUM CHLORIDE [Suspect]
     Active Substance: SODIUM CHLORIDE
     Dosage: 50 ML, QD (DILUTED WITH DOXORUBICIN HYDROCHLORIDE 23.5 MG )
     Route: 041
     Dates: start: 20220728, end: 20220729
  4. SODIUM CHLORIDE [Suspect]
     Active Substance: SODIUM CHLORIDE
     Dosage: 500 ML, QD (DILUTED WITH ETOPOSIDE INJECTION 5.9ML )
     Route: 041
     Dates: start: 20220728, end: 20220730
  5. DOXORUBICIN HYDROCHLORIDE [Suspect]
     Active Substance: DOXORUBICIN HYDROCHLORIDE
     Indication: Hodgkin^s disease
     Dosage: 23.5 MG, QD (DILUTED WITH 0.9% SODIUM CHLORIDE INJECTION 50ML)
     Route: 041
     Dates: start: 20220728, end: 20220729
  6. ETOPOSIDE [Suspect]
     Active Substance: ETOPOSIDE
     Indication: Hodgkin^s disease
     Dosage: 5.9 ML, QD (DILUTED WITH 0.9% SODIUM CHLORIDE INJECTION 500ML)
     Route: 041
     Dates: start: 20220728, end: 20220730

REACTIONS (1)
  - Myelosuppression [Recovering/Resolving]

NARRATIVE: CASE EVENT DATE: 20220805
